FAERS Safety Report 11280430 (Version 1)
Quarter: 2015Q3

REPORT INFORMATION
  Report Type: Spontaneous
  Country: US (occurrence: US)
  Receive Date: 20150717
  Receipt Date: 20150717
  Transmission Date: 20151125
  Serious: No
  Sender: FDA-Public Use
  Company Number: US-JNJFOC-20150421064

PATIENT
  Sex: Female

DRUGS (1)
  1. XARELTO [Suspect]
     Active Substance: RIVAROXABAN
     Indication: PRODUCT USED FOR UNKNOWN INDICATION
     Route: 048

REACTIONS (8)
  - Dyspnoea [Unknown]
  - Dizziness [Unknown]
  - Heart rate increased [Unknown]
  - Asthenia [Unknown]
  - Malaise [Unknown]
  - Micturition disorder [Unknown]
  - Feeling hot [Unknown]
  - Paraesthesia [Unknown]
